FAERS Safety Report 15319821 (Version 2)
Quarter: 2018Q3

REPORT INFORMATION
  Report Type: Spontaneous
  Country: CH (occurrence: CH)
  Receive Date: 20180827
  Receipt Date: 20180917
  Transmission Date: 20181010
  Serious: Yes (Other)
  Sender: FDA-Public Use
  Company Number: CH-ROCHE-2174022

PATIENT
  Age: 67 Year
  Sex: Female
  Weight: 65 kg

DRUGS (20)
  1. ACTEMRA [Suspect]
     Active Substance: TOCILIZUMAB
     Dosage: 400 MG PLUS 80 MG
     Route: 042
     Dates: start: 201710
  2. NOVALGIN (SWITZERLAND) [Concomitant]
     Active Substance: DIPYRONE
     Indication: PAIN
     Route: 048
     Dates: start: 201705
  3. ACIDUM FOLICUM [Concomitant]
     Active Substance: FOLIC ACID
     Route: 048
     Dates: start: 20170501
  4. ACTEMRA [Suspect]
     Active Substance: TOCILIZUMAB
     Dosage: 400 MG AND 80 MG
     Route: 042
     Dates: start: 201711
  5. ACTEMRA [Suspect]
     Active Substance: TOCILIZUMAB
     Dosage: 400 MG X 2PLUS 80 MG X 2
     Route: 042
     Dates: start: 201707
  6. ACTEMRA [Suspect]
     Active Substance: TOCILIZUMAB
     Dosage: 400 MG PLUS 80 MG X 2
     Route: 042
     Dates: start: 201712
  7. ACTEMRA [Suspect]
     Active Substance: TOCILIZUMAB
     Dosage: 400 MG PLUS 80 MG.
     Route: 042
     Dates: start: 20180206, end: 20180206
  8. SPIRICORT [Concomitant]
     Active Substance: PREDNISOLONE
     Indication: RHEUMATOID ARTHRITIS
     Dosage: 2.5?5 MG
     Route: 048
  9. ACTEMRA [Suspect]
     Active Substance: TOCILIZUMAB
     Route: 042
     Dates: start: 201709
  10. ACTEMRA [Suspect]
     Active Substance: TOCILIZUMAB
     Dosage: 400 MG AND 80 MG X 2
     Route: 042
     Dates: start: 201801
  11. PANADOL [Concomitant]
     Active Substance: ACETAMINOPHEN
     Indication: PAIN
     Route: 048
  12. LISINOPRIL. [Concomitant]
     Active Substance: LISINOPRIL
     Indication: HYPERTENSION
     Route: 048
  13. ACTEMRA [Suspect]
     Active Substance: TOCILIZUMAB
     Route: 042
     Dates: start: 20170511
  14. PANADOL [Concomitant]
     Active Substance: ACETAMINOPHEN
     Indication: PAIN
     Route: 048
  15. KALCIPOS [Concomitant]
     Active Substance: CALCIUM CARBONATE
     Indication: RHEUMATOID ARTHRITIS
     Route: 048
  16. VOLTAREN EMULGEL FORTE [Concomitant]
     Route: 062
  17. METOJECT [Concomitant]
     Active Substance: METHOTREXATE SODIUM
     Indication: RHEUMATOID ARTHRITIS
     Route: 058
     Dates: start: 20170501
  18. ACTEMRA [Suspect]
     Active Substance: TOCILIZUMAB
     Indication: RHEUMATOID ARTHRITIS
     Dosage: MINIMAL DOSE 400 MG AND MAXIMAL DOSE 560 MG.
     Route: 042
     Dates: start: 20170419
  19. ACTEMRA [Suspect]
     Active Substance: TOCILIZUMAB
     Dosage: 400 MG, 80MG  X 2
     Route: 042
     Dates: start: 201706
  20. TILUR [Concomitant]
     Active Substance: ACEMETACIN
     Indication: PAIN
     Route: 048
     Dates: start: 20170419

REACTIONS (2)
  - Alopecia [Recovering/Resolving]
  - Leukopenia [Recovered/Resolved]

NARRATIVE: CASE EVENT DATE: 20170512
